FAERS Safety Report 14863649 (Version 1)
Quarter: 2018Q2

REPORT INFORMATION
  Report Type: Spontaneous
  Country: US (occurrence: US)
  Receive Date: 20180508
  Receipt Date: 20180508
  Transmission Date: 20180711
  Serious: No
  Sender: FDA-Public Use
  Company Number: US-ALKERMES INC.-ALK-2017-003062

PATIENT
  Age: 16 Year
  Sex: Female

DRUGS (4)
  1. NALTREXONE [Concomitant]
     Active Substance: NALTREXONE
     Indication: PRODUCT USED FOR UNKNOWN INDICATION
  2. QUETIAPINE. [Concomitant]
     Active Substance: QUETIAPINE
     Indication: PRODUCT USED FOR UNKNOWN INDICATION
  3. VIVITROL [Suspect]
     Active Substance: NALTREXONE
     Indication: ALCOHOL ABUSE
     Dosage: 380 MG, QMO
     Route: 030
     Dates: start: 20170711
  4. VIVITROL [Suspect]
     Active Substance: NALTREXONE
     Indication: DRUG ABUSE

REACTIONS (3)
  - Injection site reaction [Unknown]
  - Off label use [Unknown]
  - Injection site pain [Unknown]

NARRATIVE: CASE EVENT DATE: 201707
